FAERS Safety Report 10579640 (Version 2)
Quarter: 2014Q4

REPORT INFORMATION
  Report Type: Report from Study
  Country: KR (occurrence: KR)
  Receive Date: 20141112
  Receipt Date: 20141112
  Transmission Date: 20150529
  Serious: Yes (Death, Hospitalization)
  Sender: FDA-Public Use
  Company Number: KR-ASTELLAS-2014JP009923AA

PATIENT
  Age: 83 Year
  Sex: Male
  Weight: 45 kg

DRUGS (13)
  1. MACPERAN [Concomitant]
     Indication: PRODUCT USED FOR UNKNOWN INDICATION
     Route: 042
     Dates: start: 20140529, end: 20140529
  2. MEGACE F [Concomitant]
     Route: 048
     Dates: start: 20140531
  3. ENZALUTAMIDE [Suspect]
     Active Substance: ENZALUTAMIDE
     Indication: PROSTATE CANCER
     Dosage: UNK UNK, UNKNOWN FREQ.
     Route: 048
     Dates: start: 20140418
  4. ALBIS [Concomitant]
     Active Substance: BISMUTH SUBCITRATE\RANITIDINE HYDROCHLORIDE\SUCRALFATE
     Indication: PROSTATE CANCER
     Route: 048
     Dates: start: 20131216, end: 20141024
  5. NEURONTIN [Concomitant]
     Active Substance: GABAPENTIN
     Indication: PROSTATE CANCER
     Route: 048
     Dates: start: 20131216, end: 20141024
  6. NASEA [Concomitant]
     Active Substance: RAMOSETRON HYDROCHLORIDE
     Indication: PRODUCT USED FOR UNKNOWN INDICATION
     Dosage: 0.6 ML, ONCE DAILY
     Route: 042
     Dates: start: 20140530, end: 20140530
  7. MEGACE F [Concomitant]
     Indication: PROSTATE CANCER
     Route: 048
     Dates: start: 20131216, end: 20140605
  8. ZIPAN                              /00599202/ [Concomitant]
     Indication: PRODUCT USED FOR UNKNOWN INDICATION
     Route: 042
     Dates: start: 20140529, end: 20140602
  9. SYNACTHEN                          /00055703/ [Concomitant]
     Indication: PRODUCT USED FOR UNKNOWN INDICATION
     Dosage: 250 ?G/ML, ONCE DAILY
     Route: 042
     Dates: start: 20140602, end: 20140602
  10. TYLENOL ER [Concomitant]
     Active Substance: ACETAMINOPHEN
     Indication: PRODUCT USED FOR UNKNOWN INDICATION
     Route: 048
     Dates: start: 20140529, end: 20140602
  11. HARNAL [Concomitant]
     Active Substance: TAMSULOSIN HYDROCHLORIDE
     Indication: PROSTATE CANCER
     Route: 048
     Dates: start: 20130807, end: 20141024
  12. NASEA [Concomitant]
     Active Substance: RAMOSETRON HYDROCHLORIDE
     Dosage: 0.3 ML, ONCE DAILY
     Route: 042
     Dates: start: 20140531, end: 20140602
  13. CAFSEL [Concomitant]
     Indication: PRODUCT USED FOR UNKNOWN INDICATION
     Route: 042
     Dates: start: 20140529, end: 20140529

REACTIONS (4)
  - Death [Fatal]
  - Vomiting [Recovered/Resolved]
  - Hyponatraemia [Recovered/Resolved]
  - Nausea [Recovered/Resolved]

NARRATIVE: CASE EVENT DATE: 20140524
